FAERS Safety Report 12119765 (Version 1)
Quarter: 2016Q1

REPORT INFORMATION
  Report Type: Spontaneous
  Country: FR (occurrence: FR)
  Receive Date: 20160226
  Receipt Date: 20160226
  Transmission Date: 20160526
  Serious: Yes (Hospitalization)
  Sender: FDA-Public Use
  Company Number: FR-TEVA-636262ISR

PATIENT
  Age: 11 Year
  Sex: Female
  Weight: 45.4 kg

DRUGS (4)
  1. DOXORUBICINE TEVA [Suspect]
     Active Substance: DOXORUBICIN
     Dosage: 27 MILLIGRAM DAILY; VIDE PROTOCOL
     Route: 042
     Dates: start: 20160129, end: 20160131
  2. ETOPOPHOS [Suspect]
     Active Substance: ETOPOSIDE PHOSPHATE
     Dosage: 200 MILLIGRAM DAILY; VIDE PROTOCOL
     Route: 042
     Dates: start: 20160129, end: 20160131
  3. VINCRISTINE TEVA [Suspect]
     Active Substance: VINCRISTINE
     Dosage: 2 MILLIGRAM DAILY; VIDE PROTOCOL
     Route: 042
     Dates: start: 20160129
  4. IFOSFAMIDE EG [Suspect]
     Active Substance: IFOSFAMIDE
     Dosage: 4080 MILLIGRAM DAILY; VIDE PROTOCOL
     Route: 042
     Dates: start: 20160129, end: 20160131

REACTIONS (1)
  - Encephalopathy [Recovered/Resolved]

NARRATIVE: CASE EVENT DATE: 20160130
